FAERS Safety Report 9450343 (Version 2)
Quarter: 2013Q3

REPORT INFORMATION
  Report Type: Spontaneous
  Country: US (occurrence: US)
  Receive Date: 20130809
  Receipt Date: 20130813
  Transmission Date: 20140515
  Serious: Yes (Hospitalization)
  Sender: FDA-Public Use
  Company Number: US-BAYER-2013-095408

PATIENT
  Age: 90 Year
  Sex: Male
  Weight: 109 kg

DRUGS (9)
  1. BAYER GENUINE ASPIRIN ORIGINAL STRENGTH [Suspect]
     Indication: ISCHAEMIC HEART DISEASE PROPHYLAXIS
     Dosage: 2 DF, QD
     Route: 048
     Dates: end: 201303
  2. CITRACAL [Concomitant]
     Route: 048
  3. IRON [Concomitant]
  4. OMEPRAZOLE [Concomitant]
  5. VITAMIN C [Concomitant]
  6. FOLIC ACID [Concomitant]
  7. TRAMADOL [Concomitant]
  8. TRAMAZOLINE HYDROCHLORIDE [Concomitant]
  9. FLUOXETINE [Concomitant]

REACTIONS (3)
  - Upper gastrointestinal haemorrhage [Recovered/Resolved]
  - Faeces discoloured [Recovered/Resolved]
  - Therapeutic response unexpected [None]
